FAERS Safety Report 9324222 (Version 2)
Quarter: 2013Q2

REPORT INFORMATION
  Report Type: Spontaneous
  Country: US (occurrence: None)
  Receive Date: 20130529
  Receipt Date: 20130611
  Transmission Date: 20140414
  Serious: Yes (Other)
  Sender: FDA-Public Use
  Company Number: AUR-APL-2013-04347

PATIENT
  Age: 18 Year
  Sex: Female

DRUGS (1)
  1. CETIRIZINE [Suspect]
     Indication: RHINITIS ALLERGIC
     Dosage: 10MG 1 D

REACTIONS (10)
  - Delusional perception [None]
  - Depression [None]
  - Suicidal ideation [None]
  - Paranoia [None]
  - Anxiety [None]
  - Feelings of worthlessness [None]
  - Disturbance in attention [None]
  - Decreased appetite [None]
  - Insomnia [None]
  - Thinking abnormal [None]
